FAERS Safety Report 6575749-5 (Version None)
Quarter: 2010Q1

REPORT INFORMATION
  Report Type: 
  Country: None (occurrence: None)
  Receive Date: 20100202
  Receipt Date: 20100122
  Transmission Date: 20100710
  Serious: No
  Sender: FDA-Public Use
  Company Number: 2009SP042886

PATIENT
  Age: 43 Year
  Sex: Female
  Weight: 54.4316 kg

DRUGS (2)
  1. AFRIN [Suspect]
     Indication: HYPERSENSITIVITY
     Dosage: ONCE; NAS
     Route: 045
     Dates: start: 20091223
  2. AFRIN [Suspect]
     Indication: NASAL CONGESTION
     Dosage: ONCE; NAS
     Route: 045
     Dates: start: 20091223

REACTIONS (9)
  - BURNING SENSATION [None]
  - DYSPNOEA [None]
  - EYE PAIN [None]
  - LACRIMATION INCREASED [None]
  - NASAL DISCOMFORT [None]
  - OCULAR HYPERAEMIA [None]
  - OROPHARYNGEAL PAIN [None]
  - PAIN [None]
  - THROAT TIGHTNESS [None]
